FAERS Safety Report 15409353 (Version 2)
Quarter: 2018Q3

REPORT INFORMATION
  Report Type: Report from Study
  Country: BD (occurrence: BD)
  Receive Date: 20180920
  Receipt Date: 20180924
  Transmission Date: 20181010
  Serious: Yes (Death)
  Sender: FDA-Public Use
  Company Number: PHHY2018BD101781

PATIENT
  Age: 68 Year
  Sex: Female
  Weight: 90 kg

DRUGS (1)
  1. ZOMETA [Suspect]
     Active Substance: ZOLEDRONIC ACID
     Indication: BONE PAIN
     Dosage: 4 MG, QD
     Route: 041
     Dates: start: 20180819

REACTIONS (1)
  - Asthma [Fatal]
